FAERS Safety Report 10651931 (Version 1)
Quarter: 2014Q4

REPORT INFORMATION
  Report Type: Spontaneous
  Country: US (occurrence: US)
  Receive Date: 20141215
  Receipt Date: 20141215
  Transmission Date: 20150529
  Serious: Yes (Other)
  Sender: FDA-Public Use
  Company Number: US-SHIRE-US201408800

PATIENT
  Age: 81 Year
  Sex: Female
  Weight: 62.59 kg

DRUGS (7)
  1. LIALDA [Suspect]
     Active Substance: MESALAMINE
     Dosage: 3.6 G (THREE 1.2 GRAM TABLETS), 1X/DAY:QD
     Route: 048
     Dates: start: 2014, end: 20141120
  2. LIALDA [Suspect]
     Active Substance: MESALAMINE
     Indication: COLITIS ULCERATIVE
     Dosage: 4.8 G (FOUR 1.2 GRAM TABLETS), 1X/DAY:QD
     Route: 048
     Dates: start: 20140924
  3. PREDNISONE. [Concomitant]
     Active Substance: PREDNISONE
     Indication: COLITIS ULCERATIVE
     Dosage: 2.5 MG, OTHER (EVERY 4TH DAY)
     Route: 048
     Dates: start: 1989
  4. PREDNISONE. [Concomitant]
     Active Substance: PREDNISONE
     Dosage: 30 MG, 1X/DAY:QD (FOR ONE WEEK)
     Route: 065
  5. PREDNISONE. [Concomitant]
     Active Substance: PREDNISONE
     Dosage: 40 MG, 1X/DAY:QD (FOR ONE WEEK)
     Route: 065
  6. PREDNISONE. [Concomitant]
     Active Substance: PREDNISONE
     Dosage: 20 MG, 1X/DAY:QD (FOR ONE WEEK)
     Route: 048
  7. PREDNISONE. [Concomitant]
     Active Substance: PREDNISONE
     Dosage: 15 MG, 1X/DAY:QD
     Route: 065

REACTIONS (4)
  - Feeling abnormal [Recovered/Resolved]
  - Colitis ulcerative [Unknown]
  - Abdominal pain upper [Recovered/Resolved]
  - Diarrhoea [Recovered/Resolved]

NARRATIVE: CASE EVENT DATE: 201402
